FAERS Safety Report 18960770 (Version 1)
Quarter: 2021Q1

REPORT INFORMATION
  Report Type: Spontaneous
  Country: US (occurrence: US)
  Receive Date: 20210303
  Receipt Date: 20210303
  Transmission Date: 20210420
  Serious: No
  Sender: FDA-Public Use
  Company Number: US-GLENMARK PHARMACEUTICALS-2020GMK049526

PATIENT

DRUGS (1)
  1. ASHLYNA [Suspect]
     Active Substance: ETHINYL ESTRADIOL\LEVONORGESTREL
     Indication: CONTRACEPTION
     Dosage: 0.15 MG/0.03 0.01 MG, OD
     Route: 048
     Dates: start: 2019

REACTIONS (3)
  - Product storage error [Unknown]
  - Product administration error [Unknown]
  - No adverse event [Unknown]
